FAERS Safety Report 15566295 (Version 4)
Quarter: 2018Q4

REPORT INFORMATION
  Report Type: Spontaneous
  Country: US (occurrence: US)
  Receive Date: 20181030
  Receipt Date: 20181211
  Transmission Date: 20190205
  Serious: No
  Sender: FDA-Public Use
  Company Number: US-SHIRE-US201842192

PATIENT
  Age: 82 Year
  Sex: Female
  Weight: 49.89 kg

DRUGS (2)
  1. XIIDRA [Suspect]
     Active Substance: LIFITEGRAST
     Dosage: 1 GTT, 2X/DAY:BID
     Route: 047
     Dates: start: 20181023, end: 20181023
  2. XIIDRA [Suspect]
     Active Substance: LIFITEGRAST
     Indication: DRY EYE
     Dosage: 1 GTT, 2X/DAY:BID
     Route: 047
     Dates: start: 20181022, end: 20181023

REACTIONS (8)
  - Dry eye [Not Recovered/Not Resolved]
  - Instillation site pain [Unknown]
  - Visual impairment [Not Recovered/Not Resolved]
  - Instillation site pain [Recovered/Resolved]
  - Vision blurred [Recovered/Resolved]
  - Instillation site reaction [Recovered/Resolved]
  - Impaired driving ability [Recovered/Resolved]
  - Instillation site irritation [Not Recovered/Not Resolved]

NARRATIVE: CASE EVENT DATE: 20181023
